FAERS Safety Report 16200110 (Version 1)
Quarter: 2019Q2

REPORT INFORMATION
  Report Type: Spontaneous
  Country: US (occurrence: US)
  Receive Date: 20190415
  Receipt Date: 20190415
  Transmission Date: 20190711
  Serious: No
  Sender: FDA-Public Use
  Company Number: US-SA-2019SA102152

PATIENT
  Sex: Male

DRUGS (3)
  1. FABRAZYME [Suspect]
     Active Substance: AGALSIDASE BETA
     Dosage: 80 MG
  2. FABRAZYME [Suspect]
     Active Substance: AGALSIDASE BETA
     Dosage: UNK MG
  3. DECADRON [Concomitant]
     Active Substance: DEXAMETHASONE

REACTIONS (7)
  - Haemoglobin decreased [Unknown]
  - Weight decreased [Unknown]
  - Blood immunoglobulin G increased [Unknown]
  - Orthopaedic procedure [Unknown]
  - Anaemia [Unknown]
  - Infection [Unknown]
  - Pyrexia [Unknown]
